FAERS Safety Report 8950398 (Version 1)
Quarter: 2012Q4

REPORT INFORMATION
  Report Type: 
  Country: US (occurrence: US)
  Receive Date: 20121207
  Receipt Date: 20121207
  Transmission Date: 20130627
  Serious: No
  Sender: FDA-Public Use
  Company Number: US-PFIZER INC-2012306151

PATIENT
  Age: 60 Year
  Sex: Female

DRUGS (5)
  1. LYRICA [Suspect]
     Indication: NERVE PAIN
     Dosage: 75 mg, 2x/day
     Route: 048
     Dates: start: 201211
  2. DIOVAN (VALSARTAN) [Concomitant]
     Indication: HYPERTENSION
     Dosage: 80 mg, Daily
  3. METOPROLOL [Concomitant]
     Indication: HYPERTENSION
     Dosage: 50 mg, Daily
  4. SYNTHROID [Concomitant]
     Indication: HYPERTHYROIDISM
     Dosage: 125 ug, daily
  5. CYMBALTA [Concomitant]

REACTIONS (3)
  - Weight increased [Not Recovered/Not Resolved]
  - Increased appetite [Not Recovered/Not Resolved]
  - Food craving [Unknown]
